FAERS Safety Report 8535651-6 (Version None)
Quarter: 2012Q3

REPORT INFORMATION
  Report Type: 
  Country: None (occurrence: None)
  Receive Date: 20120725
  Receipt Date: 20120719
  Transmission Date: 20120928
  Serious: No
  Sender: FDA-Public Use
  Company Number: US-PFIZER INC-2012176084

PATIENT
  Sex: Male

DRUGS (6)
  1. VICODIN [Suspect]
     Dosage: UNK
  2. MORPHINE SULFATE [Suspect]
     Indication: INTERVERTEBRAL DISC DISORDER
  3. LYRICA [Suspect]
     Indication: NERVOUS SYSTEM DISORDER
     Dosage: 25 MG, UNK
     Route: 048
     Dates: start: 20120718
  4. LYRICA [Suspect]
     Indication: INTERVERTEBRAL DISC DISORDER
  5. OXYCODONE HYDROCHLORIDE [Suspect]
     Dosage: UNK
  6. MORPHINE SULFATE [Suspect]
     Indication: NERVOUS SYSTEM DISORDER
     Dosage: UNK, 3X/WEEK

REACTIONS (4)
  - MUSCLE STRAIN [None]
  - SEDATION [None]
  - PRURITUS [None]
  - DRUG INEFFECTIVE [None]
